FAERS Safety Report 25883893 (Version 1)
Quarter: 2025Q4

REPORT INFORMATION
  Report Type: Spontaneous
  Country: EU (occurrence: EU)
  Receive Date: 20251006
  Receipt Date: 20251006
  Transmission Date: 20260118
  Serious: Yes (Hospitalization, Other)
  Sender: AUROBINDO
  Company Number: EU-AFSSAPS-RS2025000907

PATIENT
  Age: 54 Year
  Sex: Female

DRUGS (3)
  1. PACLITAXEL [Suspect]
     Active Substance: PACLITAXEL
     Indication: Endometrial cancer
     Dosage: UNK UNK, CYCLICAL (5 CYCLES EN TOUT  )
     Route: 042
     Dates: start: 20241029, end: 20250207
  2. CARBOPLATIN [Suspect]
     Active Substance: CARBOPLATIN
     Indication: Endometrial cancer
     Dosage: UNK UNK, CYCLICAL (5 CYCLES EN TOUT)
     Route: 042
     Dates: start: 20241029, end: 20250207
  3. JEMPERLI [Suspect]
     Active Substance: DOSTARLIMAB-GXLY
     Indication: Endometrial cancer
     Dosage: 1 DOSAGE FORM, CYCLICAL (5 CYCLES EN TOUT)
     Route: 042
     Dates: start: 20241029, end: 20250207

REACTIONS (4)
  - Interstitial lung disease [Recovering/Resolving]
  - Diarrhoea [Not Recovered/Not Resolved]
  - Thrombocytopenia [Recovered/Resolved]
  - Anaemia [Recovered/Resolved]

NARRATIVE: CASE EVENT DATE: 20250201
